FAERS Safety Report 17075956 (Version 4)
Quarter: 2021Q4

REPORT INFORMATION
  Report Type: Spontaneous
  Country: US (occurrence: US)
  Receive Date: 20191126
  Receipt Date: 20211015
  Transmission Date: 20220303
  Serious: Yes (Other)
  Sender: FDA-Public Use
  Company Number: US-GILEAD-2019-0439500

PATIENT
  Age: 63 Year
  Sex: Male

DRUGS (36)
  1. VIREAD [Suspect]
     Active Substance: TENOFOVIR DISOPROXIL FUMARATE
     Indication: HIV infection
     Dosage: 300 MG, QD
     Route: 048
     Dates: start: 20020730, end: 20050901
  2. VIREAD [Suspect]
     Active Substance: TENOFOVIR DISOPROXIL FUMARATE
     Dosage: 300 MG, QOD
     Route: 048
     Dates: start: 20040801
  3. VIREAD [Suspect]
     Active Substance: TENOFOVIR DISOPROXIL FUMARATE
     Dosage: UNK
     Route: 048
     Dates: start: 200408, end: 200509
  4. VIREAD [Suspect]
     Active Substance: TENOFOVIR DISOPROXIL FUMARATE
     Dosage: UNK
     Route: 048
  5. TRUVADA [Suspect]
     Active Substance: EMTRICITABINE\TENOFOVIR DISOPROXIL FUMARATE
     Indication: HIV infection
     Dosage: 1 DF QD
     Route: 048
     Dates: start: 20090914, end: 20100126
  6. TRUVADA [Suspect]
     Active Substance: EMTRICITABINE\TENOFOVIR DISOPROXIL FUMARATE
     Dosage: UNK
     Route: 048
     Dates: start: 20100126
  7. BUPROPION [Concomitant]
     Active Substance: BUPROPION
  8. CIALIS [Concomitant]
     Active Substance: TADALAFIL
  9. VICODIN [Concomitant]
     Active Substance: ACETAMINOPHEN\HYDROCODONE BITARTRATE
  10. ZOLPIDEM [Concomitant]
     Active Substance: ZOLPIDEM TARTRATE
  11. LORAZEPAM [Concomitant]
     Active Substance: LORAZEPAM
  12. COLACE [Concomitant]
     Active Substance: DOCUSATE SODIUM
  13. OMEPRAZOLE [Concomitant]
     Active Substance: OMEPRAZOLE
  14. VITAMINS NOS [Concomitant]
     Active Substance: VITAMINS
  15. SUSTIVA [Concomitant]
     Active Substance: EFAVIRENZ
  16. KALETRA [Concomitant]
     Active Substance: LOPINAVIR\RITONAVIR
  17. FORTOVASE [Concomitant]
     Active Substance: SAQUINAVIR
  18. PREDNISONE [Concomitant]
     Active Substance: PREDNISONE
  19. SEPTRA [Concomitant]
     Active Substance: SULFAMETHOXAZOLE\TRIMETHOPRIM
  20. ACYCLOVIR [Concomitant]
     Active Substance: ACYCLOVIR
  21. ASACOL [Concomitant]
     Active Substance: MESALAMINE
  22. VIRAMUNE [Concomitant]
     Active Substance: NEVIRAPINE
  23. LISINOPRIL [Concomitant]
     Active Substance: LISINOPRIL
  24. CALCIUM [Concomitant]
     Active Substance: CALCIUM
  25. EFAVIRENZ\EMTRICITABINE\TENOFOVIR DISOPROXIL FUMARATE [Concomitant]
     Active Substance: EFAVIRENZ\EMTRICITABINE\TENOFOVIR DISOPROXIL FUMARATE
  26. RITONAVIR [Concomitant]
     Active Substance: RITONAVIR
  27. PREZISTA [Concomitant]
     Active Substance: DARUNAVIR ETHANOLATE
  28. LAMIVUDINE [Concomitant]
     Active Substance: LAMIVUDINE
  29. ISENTRESS [Concomitant]
     Active Substance: RALTEGRAVIR POTASSIUM
  30. LEVITRA [Concomitant]
     Active Substance: VARDENAFIL HYDROCHLORIDE
  31. INVIRASE [Concomitant]
     Active Substance: SAQUINAVIR MESYLATE
  32. EPIVIR [Concomitant]
     Active Substance: LAMIVUDINE
  33. FAMOTIDINE [Concomitant]
     Active Substance: FAMOTIDINE
  34. METOCLOPRAMIDE [Concomitant]
     Active Substance: METOCLOPRAMIDE
  35. NORVIR [Concomitant]
     Active Substance: RITONAVIR
  36. RALTEGRAVIR [Concomitant]
     Active Substance: RALTEGRAVIR

REACTIONS (18)
  - Chronic kidney disease [Not Recovered/Not Resolved]
  - Foot fracture [Not Recovered/Not Resolved]
  - Rib fracture [Not Recovered/Not Resolved]
  - Hand fracture [Not Recovered/Not Resolved]
  - Osteoporosis [Not Recovered/Not Resolved]
  - Hip fracture [Unknown]
  - Foot fracture [Not Recovered/Not Resolved]
  - Osteonecrosis [Unknown]
  - Multiple fractures [Unknown]
  - Fanconi syndrome acquired [Not Recovered/Not Resolved]
  - Renal failure [Unknown]
  - Pain [Not Recovered/Not Resolved]
  - Emotional distress [Not Recovered/Not Resolved]
  - Anxiety [Unknown]
  - Anhedonia [Unknown]
  - Economic problem [Not Recovered/Not Resolved]
  - Osteopenia [Not Recovered/Not Resolved]
  - Bone density decreased [Unknown]

NARRATIVE: CASE EVENT DATE: 20031224
